FAERS Safety Report 11116371 (Version 1)
Quarter: 2015Q2

REPORT INFORMATION
  Report Type: Spontaneous
  Country: US (occurrence: None)
  Receive Date: 20150514
  Receipt Date: 20150514
  Transmission Date: 20150821
  Serious: Yes (Other)
  Sender: FDA-Public Use
  Company Number: None

PATIENT
  Age: 70 Year
  Sex: Female
  Weight: 49.9 kg

DRUGS (7)
  1. ALENDRONATE [Suspect]
     Active Substance: ALENDRONATE SODIUM
     Indication: OSTEOPOROSIS
     Dosage: 1 TABLET 1 MORNING EACH  WEEK SWALLOWED  WITH 2 CUPS PLAIN WATER ON EMPTY STOMACH. NO FOOD OR BEVERAGES FOR 2 HRS
     Route: 048
     Dates: start: 20100413, end: 20150227
  2. MULTIPLE VITAMIN [Concomitant]
     Active Substance: VITAMINS
  3. CO-Q10 [Concomitant]
  4. L LYSINE [Concomitant]
  5. FISH OIL [Concomitant]
     Active Substance: FISH OIL
  6. CETIRIZINE [Concomitant]
     Active Substance: CETIRIZINE HYDROCHLORIDE
  7. CALCIUM WITH VITAMIN D [Concomitant]
     Active Substance: CALCIUM\VITAMIN D

REACTIONS (3)
  - Dyspepsia [None]
  - Vomiting [None]
  - Gastrooesophageal reflux disease [None]

NARRATIVE: CASE EVENT DATE: 20141201
